FAERS Safety Report 5097039-2 (Version None)
Quarter: 2006Q3

REPORT INFORMATION
  Report Type: 
  Country: None (occurrence: None)
  Receive Date: 20060906
  Receipt Date: 20060829
  Transmission Date: 20061208
  Serious: Yes (Other)
  Sender: FDA-Public Use
  Company Number: PHBS2006BR13308

PATIENT
  Age: 46 Year
  Sex: Male
  Weight: 75 kg

DRUGS (6)
  1. SIRDALUD [Suspect]
     Indication: MUSCLE RELAXANT THERAPY
     Dosage: 12 MG/DAY
     Route: 048
  2. LIORESAL [Suspect]
     Indication: MUSCLE SPASMS
     Dosage: 80 MG/DAY
     Route: 048
  3. ACETAMINOPHEN W/ CODEINE [Concomitant]
     Indication: ANALGESIC THERAPY
     Dosage: 50 MG, UNK
     Route: 048
  4. ALPRAZOLAM [Concomitant]
     Route: 048
  5. PEPRAZOL [Concomitant]
  6. TEGRETOL [Suspect]
     Dosage: 800 MG/DAY
     Route: 048

REACTIONS (1)
  - ANAEMIA [None]
